FAERS Safety Report 15920404 (Version 8)
Quarter: 2019Q4

REPORT INFORMATION
  Report Type: Spontaneous
  Country: US (occurrence: US)
  Receive Date: 20190205
  Receipt Date: 20191111
  Transmission Date: 20200122
  Serious: Yes (Congenital Anomaly, Other)
  Sender: FDA-Public Use
  Company Number: PHEH2019US005169

PATIENT
  Sex: Male

DRUGS (2)
  1. ONDANSETRON. [Suspect]
     Active Substance: ONDANSETRON
     Indication: FOETAL EXPOSURE DURING PREGNANCY
     Dosage: MOTHER DOSE: 04 MG, QD
     Route: 064
  2. ZOFRAN [Suspect]
     Active Substance: ONDANSETRON HYDROCHLORIDE
     Indication: FOETAL EXPOSURE DURING PREGNANCY
     Dosage: MOTHER DOSE: 04 MG, QD
     Route: 064

REACTIONS (45)
  - Left-to-right cardiac shunt [Unknown]
  - Heart disease congenital [Unknown]
  - Pneumonia [Unknown]
  - Foetal exposure during pregnancy [Unknown]
  - Deformity [Unknown]
  - Rhinitis allergic [Unknown]
  - Respiratory syncytial virus infection [Unknown]
  - Dehydration [Unknown]
  - Congenital tricuspid valve stenosis [Unknown]
  - Ventricular hypoplasia [Unknown]
  - Emotional distress [Unknown]
  - Anhedonia [Unknown]
  - Atelectasis [Unknown]
  - Otitis media acute [Unknown]
  - Viral infection [Unknown]
  - Muscle spasms [Unknown]
  - Coronary artery disease [Unknown]
  - Patent ductus arteriosus [Unknown]
  - Mitral valve incompetence [Unknown]
  - Bronchiolitis [Unknown]
  - Respiratory disorder [Unknown]
  - Upper respiratory tract infection [Unknown]
  - Conjunctivitis [Unknown]
  - Hypoplastic right heart syndrome [Unknown]
  - Tricuspid valve incompetence [Unknown]
  - Pain [Unknown]
  - Ligament sprain [Unknown]
  - Head injury [Unknown]
  - Left ventricular enlargement [Unknown]
  - Cough [Unknown]
  - Wheezing [Unknown]
  - Toothache [Unknown]
  - Poor feeding infant [Unknown]
  - Pulmonary artery atresia [Unknown]
  - Injury [Unknown]
  - Gastrooesophageal reflux disease [Unknown]
  - Myopia [Unknown]
  - Gastroenteritis [Unknown]
  - Pyrexia [Unknown]
  - Urticaria [Unknown]
  - Hypertension [Unknown]
  - Left atrial dilatation [Unknown]
  - Cardiomegaly [Unknown]
  - Dermatitis [Unknown]
  - Pharyngitis [Unknown]
